FAERS Safety Report 16737675 (Version 2)
Quarter: 2019Q3

REPORT INFORMATION
  Report Type: Spontaneous
  Country: AU (occurrence: AU)
  Receive Date: 20190823
  Receipt Date: 20190830
  Transmission Date: 20191005
  Serious: Yes (Death, Hospitalization, Other)
  Sender: FDA-Public Use
  Company Number: AU-COLLEGIUM PHARMACEUTICAL, INC.-AU-2019COL000988

PATIENT
  Sex: Female

DRUGS (5)
  1. TAPENTADOL [Suspect]
     Active Substance: TAPENTADOL
     Indication: MUSCULOSKELETAL PAIN
     Dosage: 50 MG, PRN
     Route: 048
     Dates: start: 20180706, end: 20181020
  2. TAPENTADOL EXTENDED RELEASE [Suspect]
     Active Substance: TAPENTADOL
     Indication: MUSCULOSKELETAL PAIN
     Dosage: 50 MG, TID
     Dates: start: 20180706, end: 20181020
  3. TEMAZEPAM. [Suspect]
     Active Substance: TEMAZEPAM
     Indication: PRODUCT USED FOR UNKNOWN INDICATION
     Dosage: 10 MG, UNK
     Route: 048
     Dates: start: 201810
  4. CLONAZEPAM. [Suspect]
     Active Substance: CLONAZEPAM
     Indication: PRODUCT USED FOR UNKNOWN INDICATION
     Dosage: 0.5 MG, UNK
     Route: 048
     Dates: start: 201810
  5. TAPENTADOL [Suspect]
     Active Substance: TAPENTADOL
     Indication: PRODUCT USED FOR UNKNOWN INDICATION
     Dosage: 100 MG, UNK
     Dates: end: 20181020

REACTIONS (5)
  - Cardiac arrest [Unknown]
  - Drug interaction [Unknown]
  - Loss of consciousness [Unknown]
  - Death [Fatal]
  - Overdose [Unknown]
